FAERS Safety Report 18992177 (Version 1)
Quarter: 2021Q1

REPORT INFORMATION
  Report Type: Spontaneous
  Country: US (occurrence: US)
  Receive Date: 20210310
  Receipt Date: 20210310
  Transmission Date: 20210420
  Serious: Yes (Hospitalization)
  Sender: FDA-Public Use
  Company Number: None

PATIENT
  Age: 85 Year
  Sex: Male
  Weight: 101 kg

DRUGS (1)
  1. BAMLANIVIMAB. [Suspect]
     Active Substance: BAMLANIVIMAB
     Indication: COVID-19
     Route: 042
     Dates: start: 20210304, end: 20210304

REACTIONS (6)
  - Tachypnoea [None]
  - Wheezing [None]
  - Breath sounds abnormal [None]
  - Hypersensitivity [None]
  - Pulmonary oedema [None]
  - Respiratory failure [None]

NARRATIVE: CASE EVENT DATE: 20210304
